FAERS Safety Report 7380940-4 (Version None)
Quarter: 2011Q1

REPORT INFORMATION
  Report Type: 
  Country: None (occurrence: None)
  Receive Date: 20110329
  Receipt Date: 20110321
  Transmission Date: 20110831
  Serious: Yes (Hospitalization)
  Sender: FDA-Public Use
  Company Number: PHHO2011DE04075

PATIENT

DRUGS (4)
  1. MYCOPHENOLATE MOFETIL [Suspect]
     Indication: LUNG TRANSPLANT
     Dosage: 1500MG
     Route: 048
     Dates: start: 20090528
  2. PREDNISOLONE [Suspect]
     Dosage: 7.5 MG, SID
     Dates: start: 20090527
  3. CYCLOSPORINE [Suspect]
     Indication: LUNG TRANSPLANT
     Dosage: 125 MG, UNK
     Route: 048
     Dates: start: 20090528
  4. CYCLOSPORINE [Suspect]
     Dosage: 100 MG, UNK
     Route: 048

REACTIONS (2)
  - PNEUMONIA [None]
  - SEPSIS [None]
